FAERS Safety Report 6653631-2 (Version None)
Quarter: 2010Q1

REPORT INFORMATION
  Report Type: 
  Country: None (occurrence: None)
  Receive Date: 20100326
  Receipt Date: 20100316
  Transmission Date: 20100710
  Serious: Yes (Hospitalization)
  Sender: FDA-Public Use
  Company Number: JP-SANOFI-AVENTIS-2010SA013646

PATIENT
  Age: 63 Year
  Sex: Male
  Weight: 50 kg

DRUGS (10)
  1. OXALIPLATIN [Suspect]
     Indication: RECTAL CANCER
     Route: 041
     Dates: start: 20100108, end: 20100108
  2. OXALIPLATIN [Suspect]
     Route: 041
     Dates: start: 20100226, end: 20100226
  3. AVASTIN [Suspect]
     Indication: RECTAL CANCER
     Route: 041
     Dates: start: 20100108, end: 20100108
  4. AVASTIN [Suspect]
     Route: 041
     Dates: start: 20100226, end: 20100226
  5. CALCIUM LEVOFOLINATE [Concomitant]
     Indication: RECTAL CANCER
     Route: 041
     Dates: start: 20100108, end: 20100108
  6. CALCIUM LEVOFOLINATE [Concomitant]
     Route: 041
     Dates: start: 20100205, end: 20100205
  7. FLUOROURACIL [Concomitant]
     Indication: RECTAL CANCER
     Route: 040
     Dates: start: 20100108, end: 20100108
  8. FLUOROURACIL [Concomitant]
     Route: 041
     Dates: start: 20100108, end: 20100109
  9. FLUOROURACIL [Concomitant]
     Route: 040
     Dates: start: 20100205, end: 20100205
  10. FLUOROURACIL [Concomitant]
     Route: 041
     Dates: start: 20100205, end: 20100206

REACTIONS (1)
  - MYOCARDIAL INFARCTION [None]
